FAERS Safety Report 9929935 (Version 5)
Quarter: 2015Q1

REPORT INFORMATION
  Report Type: Spontaneous
  Country: JP (occurrence: JP)
  Receive Date: 20140227
  Receipt Date: 20150211
  Transmission Date: 20150721
  Serious: Yes (Life-Threatening, Hospitalization)
  Sender: FDA-Public Use
  Company Number: JP-ABBVIE-14P-087-1206639-00

PATIENT
  Age: 69 Year
  Sex: Female

DRUGS (16)
  1. MYSLEE [Suspect]
     Active Substance: ZOLPIDEM TARTRATE
     Route: 048
     Dates: start: 201304, end: 201304
  2. SEROQUEL [Suspect]
     Active Substance: QUETIAPINE FUMARATE
     Indication: DEPRESSIVE SYMPTOM
     Route: 048
  3. GASTER [Suspect]
     Active Substance: FAMOTIDINE
     Indication: PRODUCT USED FOR UNKNOWN INDICATION
     Route: 048
     Dates: start: 20130422, end: 20130422
  4. ATORVASTATIN CALCIUM. [Suspect]
     Active Substance: ATORVASTATIN CALCIUM
     Indication: HYPERLIPIDAEMIA
     Route: 048
  5. CONIEL [Suspect]
     Active Substance: BENIDIPINE HYDROCHLORIDE
     Route: 048
     Dates: start: 20130422, end: 20130422
  6. MYSLEE [Suspect]
     Active Substance: ZOLPIDEM TARTRATE
     Indication: DEPRESSIVE SYMPTOM
     Route: 048
     Dates: start: 20130330
  7. SEROQUEL [Suspect]
     Active Substance: QUETIAPINE FUMARATE
     Route: 048
     Dates: start: 20130422, end: 20130422
  8. SODIUM VALPROATE [Suspect]
     Active Substance: VALPROATE SODIUM
     Indication: PRODUCT USED FOR UNKNOWN INDICATION
     Route: 048
     Dates: start: 20130422, end: 20130422
  9. CYMBALTA [Suspect]
     Active Substance: DULOXETINE HYDROCHLORIDE
     Indication: DEPRESSION
     Route: 048
     Dates: start: 20130330
  10. ZYPREXA [Suspect]
     Active Substance: OLANZAPINE
     Indication: DEPRESSIVE SYMPTOM
     Route: 048
     Dates: start: 20130330
  11. CONIEL [Suspect]
     Active Substance: BENIDIPINE HYDROCHLORIDE
     Indication: HYPERTENSION
     Route: 048
  12. ATORVASTATIN CALCIUM. [Suspect]
     Active Substance: ATORVASTATIN CALCIUM
     Route: 048
     Dates: start: 20130422, end: 20130422
  13. CYMBALTA [Suspect]
     Active Substance: DULOXETINE HYDROCHLORIDE
     Route: 048
     Dates: start: 20130422, end: 20130422
  14. ZYPREXA [Suspect]
     Active Substance: OLANZAPINE
     Route: 048
     Dates: start: 20130422, end: 20130422
  15. ETIZOLAM [Concomitant]
     Active Substance: ETIZOLAM
     Indication: PRODUCT USED FOR UNKNOWN INDICATION
     Route: 065
     Dates: start: 20130330
  16. NICORANDIL [Suspect]
     Active Substance: NICORANDIL
     Indication: ANGINA PECTORIS
     Route: 048
     Dates: start: 20130422, end: 20130422

REACTIONS (5)
  - Supraventricular extrasystoles [Unknown]
  - Intentional overdose [Recovered/Resolved]
  - Toxicity to various agents [Recovered/Resolved]
  - Hypotension [Unknown]
  - Product use issue [Unknown]

NARRATIVE: CASE EVENT DATE: 20130422
